FAERS Safety Report 5352391-5 (Version None)
Quarter: 2007Q2

REPORT INFORMATION
  Report Type: 
  Country: None (occurrence: None)
  Receive Date: 20070607
  Receipt Date: 20070607
  Transmission Date: 20071010
  Serious: Yes (Other)
  Sender: FDA-Public Use
  Company Number: None

PATIENT
  Sex: Male
  Weight: 74.8435 kg

DRUGS (1)
  1. TENOFOVIR DISOPROXIL 300 MG GILEAD [Suspect]
     Indication: ACQUIRED IMMUNODEFICIENCY SYNDROME
     Dosage: 300MG ONCE DAILY PO
     Route: 048
     Dates: start: 20010920, end: 20061124

REACTIONS (1)
  - OSTEOMALACIA [None]
